FAERS Safety Report 22033764 (Version 5)
Quarter: 2024Q3

REPORT INFORMATION
  Report Type: Report from Study
  Country: JP (occurrence: JP)
  Receive Date: 20230224
  Receipt Date: 20240903
  Transmission Date: 20241017
  Serious: Yes (Hospitalization, Other)
  Sender: BAXTER
  Company Number: JP-BAXTER-2023BAX013687

PATIENT
  Age: 28 Year
  Sex: Male
  Weight: 61 kg

DRUGS (13)
  1. CYCLOPHOSPHAMIDE [Suspect]
     Active Substance: CYCLOPHOSPHAMIDE
     Dosage: 40 MG/KG. ONE TIME IN ONE DAY
     Route: 065
     Dates: start: 20221005, end: 20221005
  2. RABEPRAZOLE SODIUM [Concomitant]
     Active Substance: RABEPRAZOLE SODIUM
     Indication: Gastritis prophylaxis
     Dosage: 10 MG, ONCE A DAY
     Route: 048
     Dates: start: 20221103
  3. ASPIRIN [Concomitant]
     Active Substance: ASPIRIN
     Indication: Leukocytosis
     Dosage: 100 MG, ONCE A DAY
     Route: 048
     Dates: start: 20221013
  4. TACROLIMUS [Concomitant]
     Active Substance: TACROLIMUS
     Indication: Liver transplant rejection
     Dosage: 5 MG, ONCE A DAY
     Route: 048
     Dates: start: 20230210
  5. TACROLIMUS [Concomitant]
     Active Substance: TACROLIMUS
     Dosage: UNK
     Route: 048
     Dates: start: 20230724
  6. TACROLIMUS [Concomitant]
     Active Substance: TACROLIMUS
     Dosage: UNK
     Route: 048
     Dates: start: 20231030
  7. TACROLIMUS [Concomitant]
     Active Substance: TACROLIMUS
     Dosage: 0.5 MG, ONCE A DAY
     Route: 048
     Dates: start: 20230219
  8. TACROLIMUS [Concomitant]
     Active Substance: TACROLIMUS
     Dosage: 3 MG, ONCE A DAY
     Route: 048
     Dates: start: 20240729
  9. URSODIOL [Concomitant]
     Active Substance: URSODIOL
     Indication: Bile duct stenosis
     Dosage: 100 MG, EVERY 12 HOURS
     Route: 048
     Dates: start: 20230321
  10. HEPARIN SODIUM [Concomitant]
     Active Substance: HEPARIN SODIUM
     Indication: Seborrhoeic dermatitis
     Dosage: UNK, AS NECESSARY
     Route: 065
     Dates: start: 20230306
  11. RINDERON VG [Concomitant]
     Active Substance: BETAMETHASONE VALERATE\GENTAMICIN SULFATE
     Indication: Seborrhoeic dermatitis
     Dosage: UNK, AS NECESSARY
     Route: 065
     Dates: start: 20230307
  12. LOCOID [Concomitant]
     Active Substance: HYDROCORTISONE BUTYRATE
     Indication: Seborrhoeic dermatitis
     Dosage: UNK, AS NECESSARY
     Route: 065
     Dates: start: 20230307
  13. PIPERACILLIN SODIUM\TAZOBACTAM SODIUM [Concomitant]
     Active Substance: PIPERACILLIN SODIUM\TAZOBACTAM SODIUM
     Dosage: UNK, EVERY 8 HOURS
     Route: 065

REACTIONS (2)
  - Cholangitis [Recovered/Resolved]
  - Transplant rejection [Recovering/Resolving]

NARRATIVE: CASE EVENT DATE: 20230215
